FAERS Safety Report 6567998-7 (Version None)
Quarter: 2010Q1

REPORT INFORMATION
  Report Type: 
  Country: None (occurrence: None)
  Receive Date: 20100127
  Receipt Date: 20100112
  Transmission Date: 20100710
  Serious: Yes (Death)
  Sender: FDA-Public Use
  Company Number: KV201000006

PATIENT
  Age: 87 Year
  Sex: Female
  Weight: 52.2 kg

DRUGS (20)
  1. ISOSORBIDE MONONITRATE [Suspect]
     Indication: DRUG USE FOR UNKNOWN INDICATION
     Dosage: 30 MG, QD, ORAL
     Route: 048
  2. POLYETHYLENE GLYCOL [Concomitant]
  3. ADVAIR DISKUS 100/50 [Concomitant]
  4. PROTONIX [Concomitant]
  5. METOPROLOL (METOPROLOL) [Concomitant]
  6. CARBIDOPA W/LEVODOPA (CARBIDOPA, LEVODOPA) [Concomitant]
  7. SINGULAIR [Concomitant]
  8. FENTANYL-100 [Concomitant]
  9. MORPHINE [Concomitant]
  10. AURALGAN (BENZOCAINE, HYDROXYQUINOLINE SULFATE) [Concomitant]
  11. LODOSYN [Concomitant]
  12. METOLAZONE [Concomitant]
  13. LEVOXYL [Concomitant]
  14. LASIX [Concomitant]
  15. POTASSIUM CHLORIDE [Concomitant]
  16. ALPRAZOLAM [Concomitant]
  17. ASPIRIN [Concomitant]
  18. EPOETIN ALFA (EPOETIN ALFA) [Concomitant]
  19. REQUIP [Concomitant]
  20. TEMAZEPAM [Concomitant]

REACTIONS (12)
  - BLOOD POTASSIUM DECREASED [None]
  - BLOOD UREA INCREASED [None]
  - CARDIAC ARREST [None]
  - CARDIAC FAILURE CONGESTIVE [None]
  - CORONARY ARTERY DISEASE [None]
  - DYSPNOEA [None]
  - ELECTROLYTE IMBALANCE [None]
  - INFECTION [None]
  - OEDEMA PERIPHERAL [None]
  - RESPIRATORY ARREST [None]
  - RESPIRATORY DISTRESS [None]
  - VENTRICULAR TACHYCARDIA [None]
